FAERS Safety Report 9241465 (Version 1)
Quarter: 2013Q2

REPORT INFORMATION
  Report Type: Spontaneous
  Country: US (occurrence: US)
  Receive Date: 20130418
  Receipt Date: 20130418
  Transmission Date: 20140414
  Serious: No
  Sender: FDA-Public Use
  Company Number: US-SANOFI-AVENTIS-2012SA093676

PATIENT
  Age: 62 Year
  Sex: Female

DRUGS (2)
  1. LOVENOX [Suspect]
     Dates: start: 20121219
  2. COUMADIN [Concomitant]

REACTIONS (2)
  - Faeces discoloured [Not Recovered/Not Resolved]
  - Accident [Not Recovered/Not Resolved]
